FAERS Safety Report 5198430-6 (Version None)
Quarter: 2007Q1

REPORT INFORMATION
  Report Type: 
  Country: None (occurrence: None)
  Receive Date: 20070104
  Receipt Date: 20061222
  Transmission Date: 20070707
  Serious: Yes (Other)
  Sender: FDA-Public Use
  Company Number: 2006GB02056

PATIENT
  Age: 425 Month
  Sex: Male

DRUGS (4)
  1. CRESTOR [Suspect]
     Route: 048
     Dates: start: 20060125, end: 20060324
  2. CRESTOR [Suspect]
     Route: 048
     Dates: start: 20060324
  3. ASPIRIN [Concomitant]
     Indication: ANTIPLATELET THERAPY
     Route: 048
  4. NITROLINGUAL PUMPSPRAY [Concomitant]
     Indication: ANGINA PECTORIS
     Route: 048

REACTIONS (2)
  - BLOOD URINE PRESENT [None]
  - RENAL PAIN [None]
